FAERS Safety Report 24878868 (Version 1)
Quarter: 2025Q1

REPORT INFORMATION
  Report Type: Spontaneous
  Country: US (occurrence: None)
  Receive Date: 20250123
  Receipt Date: 20250123
  Transmission Date: 20250408
  Serious: Yes (Hospitalization)
  Sender: FDA-CTU
  Company Number: None

PATIENT
  Age: 72 Year
  Sex: Female

DRUGS (1)
  1. SIMPONI [Suspect]
     Active Substance: GOLIMUMAB
     Indication: Rheumatoid arthritis
     Route: 058
     Dates: start: 202404

REACTIONS (4)
  - Peripheral swelling [None]
  - Joint swelling [None]
  - Rheumatoid arthritis [None]
  - Musculoskeletal disorder [None]

NARRATIVE: CASE EVENT DATE: 20250115
